FAERS Safety Report 9494591 (Version 1)
Quarter: 2013Q3

REPORT INFORMATION
  Report Type: Spontaneous
  Country: JP (occurrence: JP)
  Receive Date: 20130903
  Receipt Date: 20130903
  Transmission Date: 20140515
  Serious: Yes (Hospitalization)
  Sender: FDA-Public Use
  Company Number: JP-NOVOPROD-386392

PATIENT
  Age: 21 Year
  Sex: Male

DRUGS (2)
  1. NOVORAPID 30 MIX CHU FLEXPEN [Suspect]
     Indication: OFF LABEL USE
     Dosage: UNKNOWN
     Route: 058
  2. BENZALIN /00036201/ [Suspect]
     Indication: OFF LABEL USE
     Dosage: 30 MG, QD
     Route: 048

REACTIONS (4)
  - Suicide attempt [Unknown]
  - Intentional drug misuse [Unknown]
  - Hemiplegia [Recovered/Resolved]
  - Hypoglycaemic encephalopathy [Recovered/Resolved with Sequelae]
